FAERS Safety Report 15725917 (Version 3)
Quarter: 2020Q4

REPORT INFORMATION
  Report Type: Report from Study
  Country: US (occurrence: US)
  Receive Date: 20181216
  Receipt Date: 20201204
  Transmission Date: 20210113
  Serious: No
  Sender: FDA-Public Use
  Company Number: PHEH2018US051608

PATIENT
  Age: 56 Year
  Sex: Male

DRUGS (2)
  1. COSENTYX [Suspect]
     Active Substance: SECUKINUMAB
     Dosage: 300 MG, QW (300MG EVRY WEEK FOR 5 WEEKS FOLLOWED BY EVERY 4 WEEKS)
     Route: 058
     Dates: start: 20201124
  2. COSENTYX [Suspect]
     Active Substance: SECUKINUMAB
     Indication: PSORIASIS
     Dosage: UNK
     Route: 058

REACTIONS (2)
  - Abdominal pain upper [Unknown]
  - Tooth abscess [Unknown]

NARRATIVE: CASE EVENT DATE: 20181204
